FAERS Safety Report 8305638-7 (Version None)
Quarter: 2012Q2

REPORT INFORMATION
  Report Type: 
  Country: None (occurrence: None)
  Receive Date: 20120423
  Receipt Date: 20120413
  Transmission Date: 20120825
  Serious: Yes (Disabling, Other)
  Sender: FDA-Public Use
  Company Number: BR-PFIZER INC-2012093931

PATIENT
  Age: 48 Year
  Sex: Female

DRUGS (4)
  1. GABAPENTIN [Suspect]
     Dosage: UNK
     Route: 048
  2. LYRICA [Suspect]
     Dosage: UNK
     Route: 048
     Dates: start: 20100101
  3. FLUOXETINE [Suspect]
     Dosage: UNK
     Route: 048
  4. AMITRIPTYLINE HYDROCHLORIDE [Suspect]
     Dosage: UNK
     Route: 048

REACTIONS (7)
  - LYMPHADENOPATHY [None]
  - DIZZINESS [None]
  - MYALGIA [None]
  - SLEEP DISORDER [None]
  - MUSCLE RIGIDITY [None]
  - WALKING DISABILITY [None]
  - DRUG INEFFECTIVE [None]
